FAERS Safety Report 5695979-4 (Version None)
Quarter: 2008Q2

REPORT INFORMATION
  Report Type: 
  Country: None (occurrence: None)
  Receive Date: 20080407
  Receipt Date: 20080403
  Transmission Date: 20081010
  Serious: Yes (Hospitalization)
  Sender: FDA-Public Use
  Company Number: CH-MERCK-0803CHE00024

PATIENT
  Age: 58 Year
  Sex: Female
  Weight: 119 kg

DRUGS (7)
  1. JANUVIA [Suspect]
     Indication: DIABETES MELLITUS
     Route: 048
     Dates: start: 20071101
  2. METFORMIN [Concomitant]
     Indication: DIABETES MELLITUS
     Route: 048
     Dates: start: 19990101
  3. ENALAPRIL MALEATE AND HYDROCHLOROTHIAZIDE [Concomitant]
     Indication: HYPERTENSION
     Route: 048
     Dates: start: 19920101
  4. CLOZAPINE [Concomitant]
     Indication: PARANOIA
     Route: 048
     Dates: start: 19880101
  5. PRAVASTATIN SODIUM [Concomitant]
     Indication: METABOLIC SYNDROME
     Route: 048
     Dates: start: 19990101
  6. ASPIRIN [Concomitant]
     Indication: METABOLIC SYNDROME
     Route: 048
     Dates: start: 19990101
  7. CARVEDILOL [Concomitant]
     Indication: METABOLIC SYNDROME
     Route: 048
     Dates: start: 20010101

REACTIONS (1)
  - PARANOIA [None]
